FAERS Safety Report 13620964 (Version 1)
Quarter: 2017Q2

REPORT INFORMATION
  Report Type: Spontaneous
  Country: DE (occurrence: DE)
  Receive Date: 20170607
  Receipt Date: 20170607
  Transmission Date: 20170830
  Serious: Yes (Other)
  Sender: FDA-Public Use
  Company Number: DE-DRREDDYS-GER/GER/17/0091283

PATIENT
  Sex: Female

DRUGS (3)
  1. DINOPROSTON [Concomitant]
     Indication: LABOUR INDUCTION
     Route: 064
  2. FOLIO FORTE [Concomitant]
     Active Substance: FOLIC ACID\VITAMINS
     Indication: PROPHYLAXIS OF NEURAL TUBE DEFECT
     Dosage: 0.8 MG/D TO 0.4 MG/D)
     Route: 064
     Dates: start: 20160116, end: 20161010
  3. QUETIAPINE. [Suspect]
     Active Substance: QUETIAPINE
     Indication: SCHIZOAFFECTIVE DISORDER
     Route: 064
     Dates: start: 20160116, end: 20161010

REACTIONS (2)
  - Foetal exposure during pregnancy [Recovered/Resolved]
  - Bradycardia foetal [Recovered/Resolved]
